FAERS Safety Report 9499971 (Version 2)
Quarter: 2013Q3

REPORT INFORMATION
  Report Type: Spontaneous
  Country: US (occurrence: US)
  Receive Date: 20130905
  Receipt Date: 20130927
  Transmission Date: 20140515
  Serious: No
  Sender: FDA-Public Use
  Company Number: US-PFIZER INC-2013254264

PATIENT
  Age: 35 Year
  Sex: Female
  Weight: 63.49 kg

DRUGS (8)
  1. XELJANZ [Suspect]
     Indication: RHEUMATOID ARTHRITIS
     Dosage: 5 MG, BID
     Route: 048
     Dates: start: 20130627
  2. SOMA [Concomitant]
     Dosage: 250 MG, UNK
  3. LOMOTIL [Concomitant]
     Dosage: [ATROPINE SULFATE 2.5]/ [DIPHENOXYLATE HYDROCHLORIDE 5], UNK
  4. IMITREX [Concomitant]
     Dosage: 100 MG, UNK
  5. CLONAZEPAM [Concomitant]
     Dosage: UNK
  6. LAMOTRIGINE [Concomitant]
     Dosage: UNK
  7. NAPROXEN [Concomitant]
     Dosage: UNK
  8. SUMATRIPTAN [Concomitant]
     Dosage: UNK

REACTIONS (1)
  - Headache [Not Recovered/Not Resolved]
